FAERS Safety Report 5197867-9 (Version None)
Quarter: 2006Q4

REPORT INFORMATION
  Report Type: 
  Country: None (occurrence: None)
  Receive Date: 20061228
  Receipt Date: 20061218
  Transmission Date: 20070319
  Serious: Yes (Other)
  Sender: FDA-Public Use
  Company Number: 2006US-03030

PATIENT
  Sex: Female

DRUGS (1)
  1. ISOTRETINOIN [Suspect]

REACTIONS (1)
  - RECTAL HAEMORRHAGE [None]
